FAERS Safety Report 9527875 (Version 1)
Quarter: 2013Q3

REPORT INFORMATION
  Report Type: Spontaneous
  Country: US (occurrence: US)
  Receive Date: 20130917
  Receipt Date: 20130917
  Transmission Date: 20140515
  Serious: No
  Sender: FDA-Public Use
  Company Number: US-PFIZER INC-2013265548

PATIENT
  Age: 31 Year
  Sex: Female
  Weight: 107 kg

DRUGS (2)
  1. GEODON [Suspect]
     Indication: BIPOLAR DISORDER
     Dosage: 300 MG (TWO OF 150MG AT NIGHT), 1X/DAY
     Dates: start: 2004, end: 2010
  2. GEODON [Suspect]
     Indication: PSYCHOTIC DISORDER

REACTIONS (2)
  - Fluid retention [Not Recovered/Not Resolved]
  - Weight increased [Not Recovered/Not Resolved]
